FAERS Safety Report 20216512 (Version 1)
Quarter: 2021Q4

REPORT INFORMATION
  Report Type: Spontaneous
  Country: US (occurrence: None)
  Receive Date: 20211221
  Receipt Date: 20211221
  Transmission Date: 20220303
  Serious: Yes (Hospitalization)
  Sender: FDA-Public Use
  Company Number: None

PATIENT
  Age: 79 Year
  Sex: Female
  Weight: 57.15 kg

DRUGS (18)
  1. TREXALL [Suspect]
     Active Substance: METHOTREXATE SODIUM
     Indication: Lymphocytic leukaemia
     Dosage: OTHER FREQUENCY : WEEKLY;?
     Route: 048
     Dates: start: 20211007
  2. TREXALL [Suspect]
     Active Substance: METHOTREXATE SODIUM
     Indication: Lymphocytic leukaemia
     Dosage: OTHER FREQUENCY : WEEKLY;?
     Route: 048
     Dates: start: 20210409
  3. ELIQUIS [Concomitant]
     Active Substance: APIXABAN
  4. Vitamin B12 ER 1000mcg [Concomitant]
  5. CYCLOPHOSPHAMIDE [Concomitant]
     Active Substance: CYCLOPHOSPHAMIDE
  6. Digox 125mcg [Concomitant]
  7. FLUCONAZOLE [Concomitant]
     Active Substance: FLUCONAZOLE
  8. FOLIC ACID [Concomitant]
     Active Substance: FOLIC ACID
  9. FUROSEMIDE [Concomitant]
     Active Substance: FUROSEMIDE
  10. HYDROXYZINE [Concomitant]
     Active Substance: HYDROXYZINE HYDROCHLORIDE
  11. KEPPRA [Concomitant]
     Active Substance: LEVETIRACETAM
  12. LEVAQUIN [Concomitant]
     Active Substance: LEVOFLOXACIN
  13. Metoprolol succinate ER 50mg [Concomitant]
  14. Morphine sulfate ER 50mg [Concomitant]
  15. PREDNISONE [Concomitant]
     Active Substance: PREDNISONE
  16. PROAIR HFA [Concomitant]
     Active Substance: ALBUTEROL SULFATE
  17. Senna Plus 50-8.6mg [Concomitant]
  18. Spiriva Handihaler 18mcg [Concomitant]

REACTIONS (1)
  - Hospitalisation [None]

NARRATIVE: CASE EVENT DATE: 20211221
